FAERS Safety Report 8215681-4 (Version None)
Quarter: 2012Q1

REPORT INFORMATION
  Report Type: 
  Country: None (occurrence: None)
  Receive Date: 20120316
  Receipt Date: 20120309
  Transmission Date: 20120608
  Serious: Yes (Life-Threatening, Hospitalization)
  Sender: FDA-Public Use
  Company Number: FR-PFIZER INC-2012063176

PATIENT
  Age: 73 Year
  Sex: Female

DRUGS (12)
  1. SPIRIVA [Concomitant]
  2. PANTOPRAZOLE SODIUM [Suspect]
     Indication: PROPHYLAXIS AGAINST GASTROINTESTINAL ULCER
     Dosage: 40 MG, 1X/DAY
     Route: 048
     Dates: start: 20000101
  3. ATORVASTATIN [Concomitant]
  4. LEKOVIT CA [Concomitant]
  5. ZESTORETIC [Concomitant]
  6. PREDNISONE TAB [Suspect]
     Indication: RHEUMATOID ARTHRITIS
     Dosage: 5 MG, UNK
     Route: 048
     Dates: start: 19850101
  7. FLUTICASONE [Concomitant]
  8. ETANERCEPT [Suspect]
     Indication: RHEUMATOID ARTHRITIS
     Dosage: 50 MG, 1 IN 1 WK
     Route: 058
     Dates: start: 20110106, end: 20110301
  9. METFORMIN [Concomitant]
     Dosage: 500 MG, UNK
  10. PLAVIX [Concomitant]
  11. EZETIMIBE [Concomitant]
  12. ARAVA [Suspect]
     Indication: RHEUMATOID ARTHRITIS
     Dosage: 10 MG, UNK
     Route: 048
     Dates: start: 20030901, end: 20110101

REACTIONS (2)
  - CLOSTRIDIUM DIFFICILE SEPSIS [None]
  - SEPTIC SHOCK [None]
